FAERS Safety Report 6873399-4 (Version None)
Quarter: 2010Q3

REPORT INFORMATION
  Report Type: 
  Country: None (occurrence: None)
  Receive Date: 20100723
  Receipt Date: 20091201
  Transmission Date: 20110219
  Serious: No
  Sender: FDA-Public Use
  Company Number: US-PFIZER INC-2008160672

PATIENT
  Sex: Female
  Weight: 49.9 kg

DRUGS (8)
  1. CHANTIX [Suspect]
     Indication: SMOKING CESSATION THERAPY
     Dosage: 0.5 MG, 2X/DAY
     Dates: start: 20081221
  2. AMBIEN ER [Concomitant]
     Indication: SLEEP DISORDER
     Dosage: UNK
  3. DEPAKOTE ER [Concomitant]
     Dosage: UNK
  4. CYMBALTA [Concomitant]
     Dosage: UNK
  5. FENTANYL [Concomitant]
     Indication: PAIN
  6. FENTANYL [Concomitant]
     Indication: SPINAL COLUMN STENOSIS
  7. HYDROCODONE [Concomitant]
     Indication: PAIN
  8. HYDROCODONE [Concomitant]
     Indication: SPINAL COLUMN STENOSIS

REACTIONS (14)
  - ABDOMINAL DISCOMFORT [None]
  - ASTHENIA [None]
  - BACK PAIN [None]
  - CONFUSIONAL STATE [None]
  - DEPRESSED MOOD [None]
  - EATING DISORDER [None]
  - EMOTIONAL DISORDER [None]
  - GASTRIC DISORDER [None]
  - INSOMNIA [None]
  - MALAISE [None]
  - MEMORY IMPAIRMENT [None]
  - MOBILITY DECREASED [None]
  - NAUSEA [None]
  - NIGHTMARE [None]
